FAERS Safety Report 9999522 (Version 1)
Quarter: 2014Q1

REPORT INFORMATION
  Report Type: Spontaneous
  Country: GB (occurrence: None)
  Receive Date: 20140310
  Receipt Date: 20140310
  Transmission Date: 20141002
  Serious: Yes (Life-Threatening)
  Sender: FDA-Public Use
  Company Number: GB-DEXPHARM-20140050

PATIENT
  Age: 70 Year
  Sex: Female
  Weight: 63.9 kg

DRUGS (3)
  1. OMEPRAZOLE [Suspect]
     Dates: start: 20131015, end: 20131219
  2. AVEENO [Concomitant]
  3. METOCLOPRAMIDE [Concomitant]

REACTIONS (1)
  - Renal failure acute [None]
